FAERS Safety Report 20039087 (Version 3)
Quarter: 2022Q1

REPORT INFORMATION
  Report Type: Spontaneous
  Country: JP (occurrence: JP)
  Receive Date: 20211105
  Receipt Date: 20220207
  Transmission Date: 20220423
  Serious: Yes (Hospitalization, Other)
  Sender: FDA-Public Use
  Company Number: JP-TAKEDA-2021TJP112734

PATIENT
  Age: 86 Year
  Sex: Male
  Weight: 59.2 kg

DRUGS (4)
  1. ADCETRIS [Suspect]
     Active Substance: BRENTUXIMAB VEDOTIN
     Indication: Peripheral T-cell lymphoma unspecified
     Dosage: 100 MILLIGRAM, Q4WEEKS
     Route: 041
     Dates: start: 20210713, end: 20211209
  2. CYCLOPHOSPHAMIDE [Suspect]
     Active Substance: CYCLOPHOSPHAMIDE
     Indication: Peripheral T-cell lymphoma unspecified
     Dosage: 850 MILLIGRAM, Q4WEEKS
     Route: 041
     Dates: start: 20210713, end: 20211209
  3. DOXORUBICIN HYDROCHLORIDE [Suspect]
     Active Substance: DOXORUBICIN HYDROCHLORIDE
     Indication: Peripheral T-cell lymphoma unspecified
     Dosage: 55 MILLIGRAM, Q4WEEKS
     Route: 041
     Dates: start: 20210713, end: 20211209
  4. PREDNISOLONE [Suspect]
     Active Substance: PREDNISOLONE
     Indication: Peripheral T-cell lymphoma unspecified
     Dosage: 30 MILLIGRAM, BID
     Route: 048
     Dates: start: 20210713

REACTIONS (3)
  - Pulmonary hypertension [Unknown]
  - Myelosuppression [Recovered/Resolved]
  - Inappropriate schedule of product administration [Unknown]

NARRATIVE: CASE EVENT DATE: 20210713
